FAERS Safety Report 17006854 (Version 1)
Quarter: 2019Q4

REPORT INFORMATION
  Report Type: Spontaneous
  Country: US (occurrence: US)
  Receive Date: 20191106
  Receipt Date: 20191106
  Transmission Date: 20200122
  Serious: Yes (Hospitalization)
  Sender: FDA-Public Use
  Company Number: None

PATIENT
  Sex: Female

DRUGS (11)
  1. VENLAFAXINE [Concomitant]
     Active Substance: VENLAFAXINE HYDROCHLORIDE
  2. ALDACTONE [Concomitant]
     Active Substance: SPIRONOLACTONE
  3. CARVEDILOL. [Concomitant]
     Active Substance: CARVEDILOL
  4. FUROSEMIDE. [Concomitant]
     Active Substance: FUROSEMIDE
  5. LOSARTAN/HCT [Concomitant]
     Active Substance: HYDROCHLOROTHIAZIDE\LOSARTAN POTASSIUM
  6. XGEVA [Concomitant]
     Active Substance: DENOSUMAB
  7. SPIRONOLACT [Concomitant]
     Active Substance: SPIRONOLACTONE
  8. PIQRAY [Suspect]
     Active Substance: ALPELISIB
     Indication: BREAST CANCER FEMALE
     Route: 048
     Dates: start: 20190626
  9. VIT D3/VIT C [Concomitant]
  10. POTASSIUM [Concomitant]
     Active Substance: POTASSIUM
  11. ANASTROZOLE. [Concomitant]
     Active Substance: ANASTROZOLE

REACTIONS (5)
  - Renal failure [None]
  - Dehydration [None]
  - Diarrhoea [None]
  - Nausea [None]
  - Vomiting [None]
